FAERS Safety Report 8393266-7 (Version None)
Quarter: 2012Q2

REPORT INFORMATION
  Report Type: 
  Country: None (occurrence: None)
  Receive Date: 20120529
  Receipt Date: 20120523
  Transmission Date: 20120825
  Serious: Yes (Hospitalization, Other)
  Sender: FDA-Public Use
  Company Number: JP-PFIZER INC-2012053097

PATIENT
  Age: 28 Year
  Sex: Male
  Weight: 65 kg

DRUGS (6)
  1. TOMIRON [Concomitant]
     Indication: ANTIPYRESIS
     Dosage: 3 DF, 1X/DAY
     Route: 048
     Dates: start: 20080421, end: 20080428
  2. RUEFRIEN [Concomitant]
     Indication: NASOPHARYNGITIS
     Dosage: 1 G, 3X/DAY
     Route: 048
     Dates: start: 20080421, end: 20080428
  3. IBRUPROFEN [Concomitant]
     Dosage: UNK
     Route: 048
     Dates: start: 20080429
  4. SULFASALAZINE [Suspect]
     Indication: COLITIS ULCERATIVE
     Dosage: 8 TABLETS/DAY
     Route: 048
     Dates: start: 20080314, end: 20080504
  5. IBRUPROFEN [Concomitant]
     Indication: ANTIPYRESIS
     Dosage: 3 DF, 1X/DAY
     Route: 048
     Dates: start: 20080421, end: 20080428
  6. TOMIRON [Concomitant]
     Indication: NASOPHARYNGITIS

REACTIONS (3)
  - LEUKOCYTOSIS [None]
  - DRUG RASH WITH EOSINOPHILIA AND SYSTEMIC SYMPTOMS [None]
  - ASTHMA [None]
